FAERS Safety Report 4453936-X (Version None)
Quarter: 2004Q3

REPORT INFORMATION
  Report Type: 
  Country: None (occurrence: None)
  Receive Date: 20040920
  Receipt Date: 20040909
  Transmission Date: 20050211
  Serious: Yes (Hospitalization, Other)
  Sender: FDA-Public Use
  Company Number: PHBS2004JP12051

PATIENT
  Age: 1 Year

DRUGS (1)
  1. ESIDRI [Suspect]
     Route: 048

REACTIONS (6)
  - ACCIDENTAL EXPOSURE [None]
  - BLOOD PRESSURE SYSTOLIC DECREASED [None]
  - FLUSHING [None]
  - GENERALISED ERYTHEMA [None]
  - SOMNOLENCE [None]
  - TACHYCARDIA [None]
